FAERS Safety Report 4537032-9 (Version None)
Quarter: 2004Q4

REPORT INFORMATION
  Report Type: 
  Country: None (occurrence: None)
  Receive Date: 20041220
  Receipt Date: 20041206
  Transmission Date: 20050328
  Serious: Yes (Hospitalization, Other)
  Sender: FDA-Public Use
  Company Number: HQWYE712801DEC04

PATIENT
  Age: 42 Year
  Sex: Female

DRUGS (7)
  1. GEMTUZUMAB OZOGAMICIN (GEMTUZUMAB OZOGAMICIN) [Suspect]
     Indication: ACUTE MYELOID LEUKAEMIA
     Dosage: 15 MG 1X PER 1 DAY INTRAVENOUS
     Route: 042
     Dates: start: 20041111, end: 20041111
  2. GEMTUZUMAB OZOGAMICIN (GEMTUZUMAB OZOGAMICIN) [Suspect]
     Indication: ACUTE MYELOID LEUKAEMIA
     Dosage: 15 MG 1X PER 1 DAY INTRAVENOUS
     Route: 042
     Dates: start: 20041125, end: 20041125
  3. GEMTUZUMAB OZOGAMICIN (GEMTUZUMAB OZOGAMICIN, INJECTION) [Suspect]
  4. SPORANOX [Concomitant]
  5. DIGOXIN [Concomitant]
  6. METOPROLOL TARTRATE [Concomitant]
  7. SPIRONOLACTONE [Concomitant]

REACTIONS (6)
  - CHILLS [None]
  - FATIGUE [None]
  - HYPOTENSION [None]
  - INFUSION RELATED REACTION [None]
  - PYREXIA [None]
  - TACHYCARDIA [None]
